FAERS Safety Report 6128722-5 (Version None)
Quarter: 2009Q1

REPORT INFORMATION
  Report Type: 
  Country: None (occurrence: None)
  Receive Date: 20090323
  Receipt Date: 20090312
  Transmission Date: 20090719
  Serious: Yes (Hospitalization, Other)
  Sender: FDA-Public Use
  Company Number: PT-PFIZER INC-2009159210

PATIENT

DRUGS (5)
  1. ZARATOR [Suspect]
     Indication: DYSLIPIDAEMIA
     Dosage: 20 MG, 1X/DAY
     Route: 048
  2. NORVASC [Concomitant]
     Dosage: UNK
     Dates: start: 20070101
  3. NEBILET [Concomitant]
     Dosage: UNK
     Dates: start: 20070101
  4. TRIATEC [Concomitant]
     Dosage: UNK
     Dates: start: 20080401
  5. CIPRALEX [Concomitant]
     Dosage: UNK
     Dates: start: 20081001

REACTIONS (2)
  - OEDEMA MOUTH [None]
  - TONGUE OEDEMA [None]
